FAERS Safety Report 13990341 (Version 2)
Quarter: 2017Q4

REPORT INFORMATION
  Report Type: Report from Study
  Country: US (occurrence: US)
  Receive Date: 20170920
  Receipt Date: 20171026
  Transmission Date: 20180321
  Serious: Yes (Other)
  Sender: FDA-Public Use
  Company Number: US-ROCHE-1992197

PATIENT

DRUGS (6)
  1. ALTEPLASE. [Suspect]
     Active Substance: ALTEPLASE
     Dosage: INFUSED OVER THE FIRST HOUR
     Route: 042
  2. ALTEPLASE. [Suspect]
     Active Substance: ALTEPLASE
     Dosage: DELIVERED AT 20 MG/HOUR DURING THE SECOND AND THIRD HOUR OF THE INFUSION
     Route: 042
  3. ALTEPLASE. [Suspect]
     Active Substance: ALTEPLASE
     Indication: ACUTE MYOCARDIAL INFARCTION
     Dosage: OVER 2 MINUTES
     Route: 040
  4. HEPARIN [Suspect]
     Active Substance: HEPARIN SODIUM
     Dosage: 1,000 U/HOUR TITRATED TO MAINTAIN THE PARTIAL THROMBOPLASTIN TIME AT 1.5 TO 2.0 TIMES CONTROL VALUE.
     Route: 042
  5. LIDOCAINE. [Concomitant]
     Active Substance: LIDOCAINE
  6. HEPARIN [Suspect]
     Active Substance: HEPARIN SODIUM
     Indication: ACUTE MYOCARDIAL INFARCTION
     Route: 040

REACTIONS (1)
  - Gastrointestinal haemorrhage [Unknown]
